FAERS Safety Report 7400150-1 (Version None)
Quarter: 2011Q2

REPORT INFORMATION
  Report Type: 
  Country: None (occurrence: None)
  Receive Date: 20110407
  Receipt Date: 20110325
  Transmission Date: 20111010
  Serious: Yes (Other)
  Sender: FDA-Public Use
  Company Number: PHHY2011US24433

PATIENT
  Sex: Female
  Weight: 54.422 kg

DRUGS (16)
  1. EVENING PRIMROSE OIL [Concomitant]
     Dosage: UNK
     Route: 048
  2. ASCORBIC ACID [Concomitant]
     Dosage: UNK
  3. CYMBALTA [Concomitant]
     Dosage: 1 DF, DAILY
     Route: 048
     Dates: start: 20100629
  4. ELOCON [Concomitant]
     Dosage: ONCE DAILY
     Route: 061
     Dates: start: 20100209
  5. VITAMIN D [Concomitant]
     Dosage: UNK
     Route: 048
     Dates: start: 20090323
  6. AMANTADINE HCL [Concomitant]
     Dosage: ONE TO TWO TIMES A DAY
     Route: 048
     Dates: start: 20101222
  7. BACTRIM DS [Concomitant]
     Dosage: (800 TO 160 MG) 1 DF BID
     Route: 048
     Dates: start: 20110104
  8. KLONOPIN [Concomitant]
     Dosage: 0.5 MG, QD
     Route: 048
     Dates: start: 20101123
  9. LEXAPRO [Concomitant]
     Dosage: 1 DF, DAILY
     Route: 048
     Dates: start: 20101103
  10. NEURONTIN [Concomitant]
     Dosage: 300 MG, 1 TO 3 TIMES A DAY
     Route: 048
     Dates: start: 20110311
  11. ALESSE [Concomitant]
     Dosage: 1 DF, DAILY
     Route: 048
     Dates: start: 20100114
  12. FOSAMAX [Concomitant]
     Dosage: 70 MG, ONCE IN A WEEK
     Route: 048
     Dates: start: 20100611
  13. GILENYA [Suspect]
     Indication: RELAPSING-REMITTING MULTIPLE SCLEROSIS
     Dosage: 0.5 MG, QD
     Route: 048
     Dates: start: 20101201
  14. CODEINE W/PARACETAMOL [Concomitant]
     Dosage: 300 MG TO 30 MG TABLET 1 OR 2 TABLET EVERY FOUR HOURS AS NEEDED
     Route: 048
     Dates: start: 20110309
  15. DITROPAN [Concomitant]
     Dosage: 0.5 TO 1 TABLET, TWICE DAILY
     Route: 048
     Dates: start: 20101217
  16. KEPPRA [Concomitant]
     Dosage: 250 MG, UNK
     Route: 048
     Dates: start: 20110324

REACTIONS (16)
  - NEUTROPHIL COUNT INCREASED [None]
  - VISUAL ACUITY REDUCED [None]
  - VISUAL IMPAIRMENT [None]
  - SOMNOLENCE [None]
  - MIGRAINE [None]
  - PHOTOPSIA [None]
  - NUCLEAR MAGNETIC RESONANCE IMAGING BRAIN ABNORMAL [None]
  - BLOOD BILIRUBIN INCREASED [None]
  - BLOOD GLUCOSE DECREASED [None]
  - LYMPHOCYTE COUNT DECREASED [None]
  - METAMORPHOPSIA [None]
  - MENINGIOMA [None]
  - MULTIPLE SCLEROSIS [None]
  - VISUAL FIELD DEFECT [None]
  - EYE PAIN [None]
  - RED CELL DISTRIBUTION WIDTH INCREASED [None]
